FAERS Safety Report 5586520-5 (Version None)
Quarter: 2008Q1

REPORT INFORMATION
  Report Type: 
  Country: None (occurrence: None)
  Receive Date: 20080110
  Receipt Date: 20071226
  Transmission Date: 20080703
  Serious: Yes (Congenital Anomaly)
  Sender: FDA-Public Use
  Company Number: JP-AVENTIS-200713246JP

PATIENT
  Age: 0 Day
  Sex: Male
  Weight: 3.31 kg

DRUGS (10)
  1. LANTUS [Suspect]
     Route: 064
     Dates: start: 20050101
  2. LANTUS [Suspect]
     Dosage: DOSE: 26 UNITS
     Route: 063
     Dates: start: 20070101
  3. DEPAS [Concomitant]
     Route: 064
  4. BASEN [Concomitant]
     Route: 064
  5. KINEDAK [Concomitant]
     Route: 064
  6. CEREKINON [Concomitant]
     Route: 064
  7. METHYCOBAL                         /00056201/ [Concomitant]
     Route: 064
  8. BIOFERMIN R [Concomitant]
     Route: 064
  9. NOVORAPID [Concomitant]
     Dosage: DOSE: 20-30 UNITS/ DAY
     Route: 064
     Dates: start: 20061228
  10. TEGRETOL [Concomitant]
     Route: 064

REACTIONS (2)
  - DRUG EXPOSURE DURING PREGNANCY [None]
  - PULMONARY SEQUESTRATION [None]
